FAERS Safety Report 9014202 (Version 3)
Quarter: 2014Q1

REPORT INFORMATION
  Report Type: Spontaneous
  Country: CH (occurrence: CH)
  Receive Date: 20130115
  Receipt Date: 20140123
  Transmission Date: 20141002
  Serious: Yes (Death, Other)
  Sender: FDA-Public Use
  Company Number: CH-BIOGENIDEC-2013BI001294

PATIENT
  Age: 51 Year
  Sex: Male

DRUGS (2)
  1. TYSABRI [Suspect]
     Indication: RELAPSING-REMITTING MULTIPLE SCLEROSIS
     Route: 042
     Dates: start: 20100831, end: 20121206
  2. SIRDALUD [Concomitant]
     Indication: MUSCLE SPASTICITY
     Dates: start: 20120401

REACTIONS (3)
  - Ductal adenocarcinoma of pancreas [Fatal]
  - Weight decreased [Unknown]
  - Abdominal pain [Unknown]
